FAERS Safety Report 16834660 (Version 1)
Quarter: 2019Q3

REPORT INFORMATION
  Report Type: Spontaneous
  Country: US (occurrence: US)
  Receive Date: 20190920
  Receipt Date: 20190920
  Transmission Date: 20191005
  Serious: No
  Sender: FDA-Public Use
  Company Number: US-GLAXOSMITHKLINE-US2019166358

PATIENT
  Sex: Female

DRUGS (1)
  1. VALTREX [Suspect]
     Active Substance: VALACYCLOVIR HYDROCHLORIDE
     Indication: SKIN BURNING SENSATION
     Dosage: UNK
     Route: 048

REACTIONS (3)
  - Dizziness [Unknown]
  - Drug ineffective [Unknown]
  - Fatigue [Unknown]
